FAERS Safety Report 6644043-6 (Version None)
Quarter: 2010Q1

REPORT INFORMATION
  Report Type: 
  Country: None (occurrence: None)
  Receive Date: 20100304
  Receipt Date: 20100225
  Transmission Date: 20100710
  Serious: Yes (Life-Threatening)
  Sender: FDA-Public Use
  Company Number: 516322

PATIENT
  Age: 47 Year
  Sex: Male

DRUGS (4)
  1. LMD, 10%, IN 5% DEXTROSE: INJECTION IN FLEXIBLE CONTAINERS (DEXTRAN 40 [Suspect]
     Indication: DRUG USE FOR UNKNOWN INDICATION
     Dosage: INTRAVENOUS
     Route: 042
  2. BUSPIRONE HCL [Concomitant]
  3. PAXIL CR [Concomitant]
  4. VENLAFAXINE [Concomitant]

REACTIONS (8)
  - ASTHMA [None]
  - BRONCHOSPASM [None]
  - CHEST DISCOMFORT [None]
  - FEELING HOT [None]
  - PRURITUS [None]
  - STRIDOR [None]
  - SWELLING [None]
  - WHEEZING [None]
